FAERS Safety Report 20779102 (Version 1)
Quarter: 2022Q2

REPORT INFORMATION
  Report Type: Spontaneous
  Country: US (occurrence: None)
  Receive Date: 20220503
  Receipt Date: 20220503
  Transmission Date: 20220721
  Serious: Yes (Death)
  Sender: FDA-Public Use
  Company Number: None

PATIENT
  Age: 58 Year
  Sex: Male
  Weight: 97.8 kg

DRUGS (13)
  1. OCTREOTIDE [Suspect]
     Active Substance: OCTREOTIDE
     Indication: Hepatic cancer
     Dosage: FREQUENCY : 3 TIMES A DAY;?
     Route: 048
  2. DIPHENHYDRAMINE [Concomitant]
     Active Substance: DIPHENHYDRAMINE
  3. FLUDROCORTISONE [Concomitant]
  4. HEPARIN LOCK FLUSH [Concomitant]
  5. LIDOCAINE HCI [Concomitant]
  6. LOMOTIL [Concomitant]
     Active Substance: ATROPINE SULFATE\DIPHENOXYLATE HYDROCHLORIDE
  7. MIDODRINE HCI [Concomitant]
  8. OCTREOTIDE ACETATE [Concomitant]
  9. ONDANSETRON HCI [Concomitant]
  10. OPIUM OAL TINCTURE [Concomitant]
  11. POTASSIUM CHLORIDE [Concomitant]
  12. SANDOSTATIN INJECTION [Concomitant]
  13. SODIUM CHLORIDE [Concomitant]
     Active Substance: SODIUM CHLORIDE

REACTIONS (1)
  - Death [None]
